FAERS Safety Report 8934967 (Version 2)
Quarter: 2012Q4

REPORT INFORMATION
  Report Type: 
  Country: NO (occurrence: NO)
  Receive Date: 20121129
  Receipt Date: 20121210
  Transmission Date: 20130627
  Serious: Yes (Death, Hospitalization, Other)
  Sender: FDA-Public Use
  Company Number: NO-AMGEN-NORSP2012076082

PATIENT
  Age: 74 Year
  Sex: Female
  Weight: 55 kg

DRUGS (5)
  1. VECTIBIX [Suspect]
     Indication: COLON CANCER METASTATIC
     Dosage: 264 mg, every 14th day
     Route: 042
     Dates: start: 20120625, end: 20121015
  2. PARACET                            /00020001/ [Concomitant]
     Indication: PAIN
     Dosage: 1 g, qid
     Route: 048
  3. OXYCONTIN [Concomitant]
     Indication: PAIN
     Dosage: 90 mg, (60+)
     Route: 048
  4. TARGINIQ [Concomitant]
     Indication: PAIN
     Dosage: 40/20 mg, bid
     Route: 048
  5. SAROTEX [Concomitant]
     Indication: PAIN
     Dosage: 20 mg, qd
     Route: 048

REACTIONS (4)
  - Vasculitis [Fatal]
  - Sepsis [Unknown]
  - Postoperative wound infection [Unknown]
  - Glossitis [Unknown]
